FAERS Safety Report 25497476 (Version 1)
Quarter: 2025Q3

REPORT INFORMATION
  Report Type: Other
  Country: CA (occurrence: CA)
  Receive Date: 20250701
  Receipt Date: 20250701
  Transmission Date: 20251021
  Serious: Yes (Life-Threatening, Hospitalization, Other)
  Sender: APOTEX
  Company Number: CA-PGRTD-001128513

PATIENT
  Age: 74 Year
  Sex: Female

DRUGS (2)
  1. RAMIPRIL [Suspect]
     Active Substance: RAMIPRIL
     Indication: Product used for unknown indication
     Route: 065
  2. TNKASE [Suspect]
     Active Substance: TENECTEPLASE
     Indication: Cerebrovascular accident
     Route: 065

REACTIONS (2)
  - Drug interaction [Unknown]
  - Angioedema [Unknown]
